FAERS Safety Report 24069973 (Version 1)
Quarter: 2024Q3

REPORT INFORMATION
  Report Type: Report from Study
  Country: RO (occurrence: RO)
  Receive Date: 20240710
  Receipt Date: 20240710
  Transmission Date: 20241016
  Serious: No
  Sender: ROCHE
  Company Number: RO-ROCHE-3449969

PATIENT
  Age: 38 Year
  Sex: Female
  Weight: 53.0 kg

DRUGS (1)
  1. PHESGO [Suspect]
     Active Substance: HYALURONIDASE-ZZXF\PERTUZUMAB\TRASTUZUMAB
     Indication: HER2 positive breast cancer
     Route: 058
     Dates: start: 20230926

REACTIONS (10)
  - Tonsillitis [Unknown]
  - Dysphonia [Unknown]
  - Dyspepsia [Unknown]
  - Diarrhoea [Unknown]
  - Myalgia [Unknown]
  - Bone pain [Unknown]
  - Immunodeficiency [Unknown]
  - Rhinalgia [Unknown]
  - Ear pain [Unknown]
  - Oropharyngeal pain [Unknown]
